FAERS Safety Report 9472691 (Version 1)
Quarter: 2013Q3

REPORT INFORMATION
  Report Type: Spontaneous
  Country: IT (occurrence: IT)
  Receive Date: 20130823
  Receipt Date: 20130823
  Transmission Date: 20140515
  Serious: Yes (Other)
  Sender: FDA-Public Use
  Company Number: IT-MYLANLABS-2013S1018043

PATIENT
  Age: 34 Year
  Sex: Female

DRUGS (6)
  1. PACLITAXEL [Suspect]
     Indication: BREAST CANCER
     Route: 041
     Dates: start: 20130624, end: 20130624
  2. ADRIBLASTINA [Concomitant]
     Indication: BREAST CANCER
     Route: 042
     Dates: start: 20130624, end: 20130624
  3. TRIMETON /00072502/ [Concomitant]
     Indication: PROPHYLAXIS
     Route: 042
  4. FLEBOCORTID [Concomitant]
     Indication: PROPHYLAXIS
     Route: 042
  5. ONDANSETRON [Concomitant]
     Indication: PROPHYLAXIS OF NAUSEA AND VOMITING
     Route: 042
  6. RANIDIL [Concomitant]
     Indication: PRODUCT USED FOR UNKNOWN INDICATION
     Route: 042

REACTIONS (4)
  - Dyspepsia [Recovered/Resolved]
  - Feeling hot [Recovered/Resolved]
  - Nausea [Recovered/Resolved]
  - Scintillating scotoma [Recovered/Resolved]
